FAERS Safety Report 18136589 (Version 3)
Quarter: 2020Q4

REPORT INFORMATION
  Report Type: Spontaneous
  Country: JP (occurrence: JP)
  Receive Date: 20200811
  Receipt Date: 20201221
  Transmission Date: 20210113
  Serious: Yes (Death, Hospitalization, Other)
  Sender: FDA-Public Use
  Company Number: JP-009507513-2008JPN000664J

PATIENT
  Age: 83 Year
  Sex: Male
  Weight: 41 kg

DRUGS (19)
  1. CISPLATIN. [Suspect]
     Active Substance: CISPLATIN
     Dosage: 80 MILLIGRAM/SQ. METER, ONCE
     Route: 041
     Dates: start: 20200226, end: 20200226
  2. CISPLATIN. [Suspect]
     Active Substance: CISPLATIN
     Dosage: 80 MILLIGRAM/SQ. METER, ONCE
     Route: 041
     Dates: start: 20200609, end: 20200609
  3. KEYTRUDA [Suspect]
     Active Substance: PEMBROLIZUMAB
     Indication: LARYNGEAL CANCER STAGE IV
     Dosage: 200 MILLIGRAM, ONCE
     Route: 041
     Dates: start: 20200204, end: 20200204
  4. KEYTRUDA [Suspect]
     Active Substance: PEMBROLIZUMAB
     Dosage: 200 MILLIGRAM, ONCE
     Route: 041
     Dates: start: 20200324, end: 20200324
  5. KEYTRUDA [Suspect]
     Active Substance: PEMBROLIZUMAB
     Dosage: 200 MILLIGRAM, ONCE
     Route: 041
     Dates: start: 20200609, end: 20200609
  6. FLUOROURACIL. [Suspect]
     Active Substance: FLUOROURACIL
     Indication: LARYNGEAL CANCER STAGE IV
     Dosage: 1000 MILLIGRAM/SQ. METER, ONCE
     Route: 041
     Dates: start: 20200204, end: 20200204
  7. FLUOROURACIL. [Suspect]
     Active Substance: FLUOROURACIL
     Dosage: 1000 MILLIGRAM/SQ. METER, ONCE
     Route: 041
     Dates: start: 20200420, end: 20200420
  8. KEYTRUDA [Suspect]
     Active Substance: PEMBROLIZUMAB
     Dosage: 200 MILLIGRAM, ONCE
     Route: 041
     Dates: start: 20200226, end: 20200226
  9. FLUOROURACIL. [Suspect]
     Active Substance: FLUOROURACIL
     Dosage: 1000 MILLIGRAM/SQ. METER, ONCE
     Route: 041
     Dates: start: 20200519, end: 20200519
  10. CISPLATIN. [Suspect]
     Active Substance: CISPLATIN
     Indication: LARYNGEAL CANCER STAGE IV
     Dosage: 100 MILLIGRAM/SQ. METER, ONCE
     Route: 041
     Dates: start: 20200204, end: 20200204
  11. CISPLATIN. [Suspect]
     Active Substance: CISPLATIN
     Dosage: 80 MILLIGRAM/SQ. METER, ONCE
     Route: 041
     Dates: start: 20200519, end: 20200519
  12. AMLODIPINE [Concomitant]
     Active Substance: AMLODIPINE BESYLATE
     Indication: HYPERTENSION
     Dosage: 5 MILLIGRAM, QD
     Route: 048
  13. KEYTRUDA [Suspect]
     Active Substance: PEMBROLIZUMAB
     Dosage: 200 MILLIGRAM, ONCE
     Route: 041
     Dates: start: 20200519, end: 20200519
  14. CISPLATIN. [Suspect]
     Active Substance: CISPLATIN
     Dosage: 80 MILLIGRAM/SQ. METER, ONCE
     Route: 041
     Dates: start: 20200324, end: 20200324
  15. CISPLATIN. [Suspect]
     Active Substance: CISPLATIN
     Dosage: 80 MILLIGRAM/SQ. METER, ONCE
     Route: 041
     Dates: start: 20200420, end: 20200420
  16. KEYTRUDA [Suspect]
     Active Substance: PEMBROLIZUMAB
     Dosage: 200 MILLIGRAM, ONCE
     Route: 041
     Dates: start: 20200420, end: 20200420
  17. FLUOROURACIL. [Suspect]
     Active Substance: FLUOROURACIL
     Dosage: 1000 MILLIGRAM/SQ. METER, ONCE
     Route: 041
     Dates: start: 20200226, end: 20200226
  18. FLUOROURACIL. [Suspect]
     Active Substance: FLUOROURACIL
     Dosage: 1000 MILLIGRAM/SQ. METER, ONCE
     Route: 041
     Dates: start: 20200324, end: 20200324
  19. FLUOROURACIL. [Suspect]
     Active Substance: FLUOROURACIL
     Dosage: 1000 MILLIGRAM/SQ. METER, ONCE
     Route: 041
     Dates: start: 20200609, end: 20200609

REACTIONS (14)
  - Pneumothorax [Recovering/Resolving]
  - Febrile neutropenia [Recovered/Resolved]
  - Pneumonia aspiration [Unknown]
  - Platelet count decreased [Unknown]
  - Anaemia [Recovered/Resolved]
  - Bone marrow disorder [Unknown]
  - Haemoglobin decreased [Unknown]
  - Interstitial lung disease [Fatal]
  - Neutrophil count decreased [Unknown]
  - Hypokalaemia [Unknown]
  - Hypocalcaemia [Unknown]
  - Hypomagnesaemia [Unknown]
  - Neoplasm [Unknown]
  - Eastern Cooperative Oncology Group performance status worsened [Unknown]

NARRATIVE: CASE EVENT DATE: 2020
